FAERS Safety Report 13572660 (Version 2)
Quarter: 2017Q3

REPORT INFORMATION
  Report Type: Spontaneous
  Country: US (occurrence: US)
  Receive Date: 20170523
  Receipt Date: 20170725
  Transmission Date: 20171127
  Serious: No
  Sender: FDA-Public Use
  Company Number: US-JNJFOC-20170517306

PATIENT
  Sex: Female

DRUGS (14)
  1. IMBRUVICA [Suspect]
     Active Substance: IBRUTINIB
     Indication: CHRONIC LYMPHOCYTIC LEUKAEMIA
     Route: 048
     Dates: start: 20150610
  2. ZINGIBER OFFICINALE [Concomitant]
     Active Substance: GINGER
  3. FLUOROURACIL. [Concomitant]
     Active Substance: FLUOROURACIL
  4. GABAPENTIN. [Concomitant]
     Active Substance: GABAPENTIN
  5. ACETAMINOPHEN W/HYDROCODONE BITARTRATE [Concomitant]
     Active Substance: ACETAMINOPHEN\HYDROCODONE BITARTRATE
  6. ONDANSETRON [Concomitant]
     Active Substance: ONDANSETRON
  7. PRAMIPEXOLE. [Concomitant]
     Active Substance: PRAMIPEXOLE
  8. HERCEPTIN [Concomitant]
     Active Substance: TRASTUZUMAB
  9. CEFALEXIN [Concomitant]
     Active Substance: CEPHALEXIN
  10. POTASSIUM CITRATE. [Concomitant]
     Active Substance: POTASSIUM CITRATE
  11. LISINOPRIL. [Concomitant]
     Active Substance: LISINOPRIL
  12. PREDNISONE. [Concomitant]
     Active Substance: PREDNISONE
  13. PROMETHAZINE [Concomitant]
     Active Substance: PROMETHAZINE\PROMETHAZINE HYDROCHLORIDE
  14. ANASTROZOLE. [Concomitant]
     Active Substance: ANASTROZOLE

REACTIONS (2)
  - Feeding disorder [Not Recovered/Not Resolved]
  - Nausea [Unknown]
